FAERS Safety Report 20059146 (Version 3)
Quarter: 2023Q1

REPORT INFORMATION
  Report Type: Other
  Country: DE (occurrence: None)
  Receive Date: 20211111
  Receipt Date: 20230320
  Transmission Date: 20230418
  Serious: Yes (Other)
  Sender: FDA-Public Use
  Company Number: DE-ROCHE-2925110

PATIENT
  Age: 34 Year
  Sex: Female
  Weight: 91 kg

DRUGS (3)
  1. OCRELIZUMAB [Suspect]
     Active Substance: OCRELIZUMAB
     Indication: Multiple sclerosis
     Dosage: START DATE IF LAST DOSE PRIOR TO THE LMP (LAST MENSTRUAL PERIOD): 04/MAY/2021
     Route: 042
     Dates: start: 20210504, end: 20210504
  2. FOLIC ACID [Concomitant]
     Active Substance: FOLIC ACID
     Dates: start: 202107, end: 20210823
  3. FOLIC ACID [Concomitant]
     Active Substance: FOLIC ACID
     Dates: start: 20210824

REACTIONS (2)
  - Maternal exposure before pregnancy [Unknown]
  - Abortion spontaneous [Unknown]

NARRATIVE: CASE EVENT DATE: 20210927
